FAERS Safety Report 6698562-7 (Version None)
Quarter: 2010Q2

REPORT INFORMATION
  Report Type: 
  Country: None (occurrence: None)
  Receive Date: 20100427
  Receipt Date: 20100419
  Transmission Date: 20101027
  Serious: Yes (Hospitalization, Other)
  Sender: FDA-Public Use
  Company Number: DE-AMGEN-QUU389003

PATIENT
  Sex: Male
  Weight: 89 kg

DRUGS (2)
  1. NEUPOGEN [Suspect]
     Indication: PERIPHERAL BLOOD STEM CELL APHERESIS
     Route: 058
     Dates: start: 20091128, end: 20091202
  2. PARACETAMOL [Concomitant]
     Route: 048
     Dates: start: 20091129, end: 20091202

REACTIONS (2)
  - BLOOD STEM CELL HARVEST FAILURE [None]
  - DRUG INEFFECTIVE [None]
